FAERS Safety Report 4954596-1 (Version None)
Quarter: 2006Q1

REPORT INFORMATION
  Report Type: 
  Country: None (occurrence: None)
  Receive Date: 20060322
  Receipt Date: 20060313
  Transmission Date: 20060701
  Serious: Yes (Hospitalization)
  Sender: FDA-Public Use
  Company Number: CHWYE444703MAR06

PATIENT
  Sex: Female

DRUGS (4)
  1. EFFEXOR [Suspect]
     Indication: BIPOLAR I DISORDER
     Dosage: 300 + 150MG 1X PER 1 DAY ORAL
     Route: 048
     Dates: end: 20060101
  2. EFFEXOR [Suspect]
     Indication: BIPOLAR I DISORDER
     Dosage: 300 + 150MG 1X PER 1 DAY ORAL
     Route: 048
     Dates: start: 20060301
  3. LITHIUM [Concomitant]
  4. LORAZEPAM [Concomitant]

REACTIONS (3)
  - ANTIDEPRESSANT DRUG LEVEL INCREASED [None]
  - CONFUSIONAL STATE [None]
  - DISTURBANCE IN ATTENTION [None]
